FAERS Safety Report 21227992 (Version 2)
Quarter: 2022Q3

REPORT INFORMATION
  Report Type: Spontaneous
  Country: RU (occurrence: RU)
  Receive Date: 20220818
  Receipt Date: 20220902
  Transmission Date: 20221027
  Serious: Yes (Other)
  Sender: FDA-Public Use
  Company Number: RU-JNJFOC-20220821583

PATIENT
  Sex: Male
  Weight: 46.6 kg

DRUGS (6)
  1. SIRTURO [Suspect]
     Active Substance: BEDAQUILINE FUMARATE
     Indication: Product used for unknown indication
     Route: 048
     Dates: start: 20220726
  2. CLOFAZIMINE [Suspect]
     Active Substance: CLOFAZIMINE
     Indication: Product used for unknown indication
     Route: 065
     Dates: start: 20220726
  3. DELAMANID [Suspect]
     Active Substance: DELAMANID
     Indication: Product used for unknown indication
     Route: 065
     Dates: start: 20220726, end: 20220727
  4. LINEZOLID [Suspect]
     Active Substance: LINEZOLID
     Indication: Product used for unknown indication
     Route: 065
     Dates: start: 20220726
  5. LINEZOLID [Suspect]
     Active Substance: LINEZOLID
     Route: 065
     Dates: start: 20220727
  6. BENFOTIAMINE\CYANOCOBALAMIN [Concomitant]
     Active Substance: BENFOTIAMINE\CYANOCOBALAMIN
     Indication: Prophylaxis
     Route: 065
     Dates: start: 20220726, end: 20220815

REACTIONS (2)
  - Anaemia [Not Recovered/Not Resolved]
  - Hypoalbuminaemia [Not Recovered/Not Resolved]

NARRATIVE: CASE EVENT DATE: 20220729
